FAERS Safety Report 15065905 (Version 2)
Quarter: 2019Q2

REPORT INFORMATION
  Report Type: Spontaneous
  Country: CH (occurrence: CH)
  Receive Date: 20180626
  Receipt Date: 20190627
  Transmission Date: 20190711
  Serious: Yes (Other)
  Sender: FDA-Public Use
  Company Number: CH-TEVA-2018-CH-909204

PATIENT
  Age: 98 Year
  Sex: Male

DRUGS (14)
  1. INDERAL [Concomitant]
     Active Substance: PROPRANOLOL HYDROCHLORIDE
  2. INSPIREX EXTRACT [Concomitant]
  3. CLYSSIE [Concomitant]
  4. LASIX [Concomitant]
     Active Substance: FUROSEMIDE
  5. SINTROM [Concomitant]
     Active Substance: ACENOCOUMAROL
     Dates: start: 20180513
  6. VITAMIN B12 [Concomitant]
     Active Substance: CYANOCOBALAMIN
  7. DAFALGAN [Concomitant]
     Active Substance: ACETAMINOPHEN
  8. PIPERACILLIN AND TAZOBACTAM [Interacting]
     Active Substance: PIPERACILLIN SODIUM\TAZOBACTAM SODIUM
     Indication: INFLAMMATION
     Dosage: 9 GRAM DAILY;
     Route: 041
     Dates: start: 20180507, end: 20180514
  9. ONDANSETRON [Concomitant]
     Active Substance: ONDANSETRON
  10. TEMGESIC [Interacting]
     Active Substance: BUPRENORPHINE HYDROCHLORIDE
     Route: 060
  11. LAXOBERON [Concomitant]
     Active Substance: SODIUM PICOSULFATE
  12. VI-DE 3 [Concomitant]
     Active Substance: CHOLECALCIFEROL
  13. IPRAMOL [Suspect]
     Active Substance: ALBUTEROL SULFATE\IPRATROPIUM BROMIDE
     Route: 055
     Dates: start: 20180514, end: 20180516
  14. ACIDUM FOLICUM [Concomitant]
     Active Substance: FOLIC ACID

REACTIONS (2)
  - Confusional state [Recovered/Resolved]
  - Drug interaction [Unknown]

NARRATIVE: CASE EVENT DATE: 20180515
